FAERS Safety Report 11928242 (Version 1)
Quarter: 2016Q1

REPORT INFORMATION
  Report Type: Spontaneous
  Country: IE (occurrence: IE)
  Receive Date: 20160119
  Receipt Date: 20160119
  Transmission Date: 20160526
  Serious: Yes (Hospitalization)
  Sender: FDA-Public Use
  Company Number: IE-VERNALIS THERAPEUTICS, INC.-2016VRN00001

PATIENT
  Age: 14 Year
  Sex: Female

DRUGS (1)
  1. CODEINE [Suspect]
     Active Substance: CODEINE
     Indication: INFLUENZA LIKE ILLNESS
     Dosage: 30 TO 45 MG, 1X/DAY
     Route: 048

REACTIONS (8)
  - Toxicity to various agents [Recovered/Resolved]
  - Anterograde amnesia [Recovered/Resolved]
  - Hypersomnia [None]
  - Confusional state [None]
  - Incorrect drug administration duration [Recovered/Resolved]
  - Headache [None]
  - Drug screen positive [None]
  - Disturbance in attention [Recovered/Resolved]
